FAERS Safety Report 26107746 (Version 1)
Quarter: 2025Q4

REPORT INFORMATION
  Report Type: Spontaneous
  Country: EU (occurrence: EU)
  Receive Date: 20251201
  Receipt Date: 20251201
  Transmission Date: 20260117
  Serious: Yes (Hospitalization, Other)
  Sender: ALEXION PHARMACEUTICALS
  Company Number: EU-ASTRAZENECA-202511GLO027679ES

PATIENT
  Age: 76 Year
  Sex: Female

DRUGS (6)
  1. OMEPRAZOLE [Suspect]
     Active Substance: OMEPRAZOLE
     Indication: Prophylaxis
     Dosage: 20 MILLIGRAM
     Dates: start: 20250508, end: 20250822
  2. METAMIZOLE\PROPOXYPHENE [Suspect]
     Active Substance: METAMIZOLE\PROPOXYPHENE
     Indication: Pain
     Dosage: UNK
  3. ENOXAPARIN SODIUM [Suspect]
     Active Substance: ENOXAPARIN SODIUM
     Route: 065
  4. CAPTOPRIL [Concomitant]
     Active Substance: CAPTOPRIL
     Route: 065
  5. FEXOFENADINE [Concomitant]
     Active Substance: FEXOFENADINE HYDROCHLORIDE
     Route: 065
  6. VENTOLIN [Concomitant]
     Active Substance: ALBUTEROL SULFATE
     Route: 065

REACTIONS (13)
  - Aspiration [Unknown]
  - Pancreatitis necrotising [Unknown]
  - Acute kidney injury [Unknown]
  - Stenotrophomonas infection [Unknown]
  - Rash maculo-papular [Recovered/Resolved]
  - Polyneuropathy [Unknown]
  - Encephalopathy [Unknown]
  - Neutrophilia [Unknown]
  - Eosinophilia [Recovered/Resolved]
  - Normochromic normocytic anaemia [Unknown]
  - Vulvovaginal candidiasis [Unknown]
  - Rash maculo-papular [Unknown]
  - Blood urea increased [Unknown]

NARRATIVE: CASE EVENT DATE: 20250101
